FAERS Safety Report 7266412-6 (Version None)
Quarter: 2011Q1

REPORT INFORMATION
  Report Type: 
  Country: None (occurrence: None)
  Receive Date: 20110131
  Receipt Date: 20110128
  Transmission Date: 20110831
  Serious: Yes (Other)
  Sender: FDA-Public Use
  Company Number: US-AMGEN-USASP2011003416

PATIENT
  Age: 66 Year
  Sex: Female

DRUGS (3)
  1. NPLATE [Suspect]
     Dosage: UNK
     Dates: end: 20110110
  2. RITUXIMAB [Concomitant]
     Indication: IDIOPATHIC THROMBOCYTOPENIC PURPURA
     Dosage: UNK
     Dates: start: 20110103, end: 20110110
  3. NPLATE [Suspect]
     Indication: IDIOPATHIC THROMBOCYTOPENIC PURPURA
     Dosage: UNK
     Dates: start: 20110117

REACTIONS (1)
  - NO ADVERSE EVENT [None]
